FAERS Safety Report 13716701 (Version 2)
Quarter: 2017Q3

REPORT INFORMATION
  Report Type: Report from Study
  Country: DE (occurrence: DE)
  Receive Date: 20170705
  Receipt Date: 20170717
  Transmission Date: 20171127
  Serious: Yes (Hospitalization)
  Sender: FDA-Public Use
  Company Number: PHHO2017DE009794

PATIENT
  Age: 82 Year
  Sex: Female
  Weight: 65.8 kg

DRUGS (15)
  1. PANTOPRAZOLE [Concomitant]
     Active Substance: PANTOPRAZOLE
     Indication: GASTROOESOPHAGEAL REFLUX DISEASE
     Dosage: 1 DF, QD
     Route: 048
     Dates: start: 20170602, end: 20170608
  2. DOMPERIDONE [Concomitant]
     Active Substance: DOMPERIDONE
     Indication: OESOPHAGITIS
     Dosage: 10 MG, BID
     Route: 048
     Dates: start: 20170608
  3. LEE011 [Suspect]
     Active Substance: RIBOCICLIB
     Indication: BREAST CANCER
     Dosage: 600 MG, QD
     Route: 048
     Dates: start: 20170411, end: 20170501
  4. LEE011 [Suspect]
     Active Substance: RIBOCICLIB
     Dosage: 600 MG, QD
     Route: 048
     Dates: start: 20170626, end: 20170626
  5. HYPNOREX - SLOW RELEASE [Concomitant]
     Indication: DEPRESSION
     Dosage: 600 MG, QD
     Route: 048
     Dates: start: 20061004, end: 20170411
  6. HYPNOREX - SLOW RELEASE [Concomitant]
     Dosage: 400 MG, QD
     Route: 048
     Dates: start: 20170412, end: 20170424
  7. RANITIDIN [Concomitant]
     Active Substance: RANITIDINE HYDROCHLORIDE
     Indication: OESOPHAGITIS
     Dosage: 300 MG, QD
     Route: 048
     Dates: start: 20170608
  8. LEE011 [Suspect]
     Active Substance: RIBOCICLIB
     Dosage: 600 MG, QD
     Route: 048
     Dates: start: 20170522, end: 20170523
  9. LEE011 [Suspect]
     Active Substance: RIBOCICLIB
     Dosage: 600 MG, QD
     Route: 048
     Dates: start: 20170524, end: 20170529
  10. TORASEMIDE [Concomitant]
     Active Substance: TORSEMIDE
     Indication: RENAL IMPAIRMENT
     Dosage: 15 MG, QD (EVERY MORNING)
     Route: 048
     Dates: start: 20160805
  11. FOLSAN [Concomitant]
     Active Substance: FOLIC ACID
     Indication: FOLATE DEFICIENCY
     Dosage: 5 MG, QD
     Route: 048
     Dates: start: 20061004, end: 20170406
  12. HYPNOREX - SLOW RELEASE [Concomitant]
     Dosage: 400 MG, QD
     Route: 048
     Dates: start: 20170514, end: 20170625
  13. ALLOPURINOL. [Concomitant]
     Active Substance: ALLOPURINOL
     Indication: HYPERURICAEMIA
     Dosage: 100 MG, QD (VERY MORNING)
     Route: 048
     Dates: start: 20160805
  14. CGS 20267 [Suspect]
     Active Substance: LETROZOLE
     Indication: BREAST CANCER
     Dosage: 2.5 MG, QD
     Route: 048
     Dates: start: 20170411, end: 20170625
  15. MIRTAZAPIN [Concomitant]
     Active Substance: MIRTAZAPINE
     Indication: DEPRESSION
     Dosage: 30 MG, QD
     Route: 048
     Dates: start: 20061004, end: 20170625

REACTIONS (2)
  - Hiatus hernia [Not Recovered/Not Resolved]
  - Renal failure [Recovered/Resolved]

NARRATIVE: CASE EVENT DATE: 20170625
